FAERS Safety Report 10042700 (Version 1)
Quarter: 2014Q1

REPORT INFORMATION
  Report Type: Spontaneous
  Country: DK (occurrence: DK)
  Receive Date: 20140327
  Receipt Date: 20140327
  Transmission Date: 20141002
  Serious: Yes (Life-Threatening, Congenital Anomaly, Other)
  Sender: FDA-Public Use
  Company Number: PHHY2014DK035351

PATIENT
  Age: 29 Year
  Sex: Male

DRUGS (7)
  1. VINCRISTINE [Suspect]
     Dosage: UNK UKN, UNK
     Route: 064
  2. METHOTREXATE [Suspect]
     Route: 064
  3. CYTARABINE [Suspect]
     Route: 064
  4. PREDNISOLONE [Suspect]
     Route: 064
  5. L-ASPARAGINASE [Suspect]
     Route: 064
  6. MERCAPTOPURINE [Suspect]
  7. RADIATION TREATMENT [Suspect]
     Route: 064

REACTIONS (14)
  - Abdominal compartment syndrome [Unknown]
  - Congenital intestinal malformation [Unknown]
  - Constipation [Unknown]
  - Abnormal faeces [Unknown]
  - Abdominal distension [Unknown]
  - Megacolon [Unknown]
  - Acute abdomen [Unknown]
  - Abdominal pain [Unknown]
  - Abdominal pain lower [Unknown]
  - Pyrexia [Unknown]
  - Respiratory failure [Unknown]
  - Prostatomegaly [Unknown]
  - Inflammation [Unknown]
  - Faecaloma [Unknown]
